FAERS Safety Report 9213578 (Version 1)
Quarter: 2013Q2

REPORT INFORMATION
  Report Type: Spontaneous
  Country: US (occurrence: None)
  Receive Date: 20130404
  Receipt Date: 20130404
  Transmission Date: 20140414
  Serious: Yes (Hospitalization)
  Sender: FDA-Public Use
  Company Number: None

PATIENT
  Age: 46 Year
  Sex: Female
  Weight: 66.68 kg

DRUGS (1)
  1. MIGRANAL [Suspect]
     Indication: MIGRAINE
     Route: 045
     Dates: start: 20090912, end: 20090916

REACTIONS (1)
  - Chest pain [None]
